FAERS Safety Report 25006052 (Version 2)
Quarter: 2025Q2

REPORT INFORMATION
  Report Type: Report from Study
  Country: PH (occurrence: PH)
  Receive Date: 20250224
  Receipt Date: 20250416
  Transmission Date: 20250717
  Serious: Yes (Hospitalization, Other)
  Sender: MERCK SHARP AND DOHME
  Company Number: PH-009507513-2256789

PATIENT
  Age: 64 Year
  Sex: Male

DRUGS (3)
  1. KEYTRUDA [Suspect]
     Active Substance: PEMBROLIZUMAB
     Indication: Oesophageal carcinoma
     Dosage: 2ND CYCLE 200MG OF KEYTRUDA RECEIVED
     Route: 042
     Dates: start: 20250226, end: 20250226
  2. KEYTRUDA [Suspect]
     Active Substance: PEMBROLIZUMAB
     Indication: Oesophageal carcinoma
     Dosage: 3RD CYCLE 200MG OF KEYTRUDA RECEIVED
     Route: 042
     Dates: start: 20250402, end: 20250402
  3. KEYTRUDA [Suspect]
     Active Substance: PEMBROLIZUMAB
     Indication: Oesophageal carcinoma
     Dosage: 1ST CYCLE 200MG OF KEYTRUDA RECEIVED
     Route: 042
     Dates: start: 20250120, end: 20250120

REACTIONS (4)
  - Haematemesis [Recovering/Resolving]
  - Chemotherapy [Unknown]
  - Asthenia [Recovering/Resolving]
  - Diarrhoea [Recovering/Resolving]

NARRATIVE: CASE EVENT DATE: 20250203
